FAERS Safety Report 5139675-0 (Version None)
Quarter: 2006Q4

REPORT INFORMATION
  Report Type: 
  Country: None (occurrence: None)
  Receive Date: 20061024
  Receipt Date: 20061018
  Transmission Date: 20070319
  Serious: Yes (Death, Hospitalization)
  Sender: FDA-Public Use
  Company Number: 2006-02711

PATIENT
  Age: 52 Year
  Sex: Male
  Weight: 62 kg

DRUGS (3)
  1. VELCADE [Suspect]
     Indication: MULTIPLE MYELOMA
     Dosage: SEE IMAGE
     Route: 042
     Dates: start: 20060622, end: 20060622
  2. PREDNISONE TAB [Concomitant]
  3. MELPHALAN [Concomitant]

REACTIONS (3)
  - CEREBRAL HAEMORRHAGE [None]
  - EPISTAXIS [None]
  - THROMBOCYTOPENIA [None]
